FAERS Safety Report 14809349 (Version 2)
Quarter: 2018Q3

REPORT INFORMATION
  Report Type: Report from Study
  Country: US (occurrence: US)
  Receive Date: 20180425
  Receipt Date: 20180719
  Transmission Date: 20181010
  Serious: No
  Sender: FDA-Public Use
  Company Number: US-AMGEN-USASL2018029865

PATIENT
  Age: 65 Year
  Sex: Female

DRUGS (1)
  1. REPATHA [Suspect]
     Active Substance: EVOLOCUMAB
     Indication: PRODUCT USED FOR UNKNOWN INDICATION
     Dosage: 140 MG, Q2WK
     Route: 058

REACTIONS (8)
  - Chest pain [Unknown]
  - Arthralgia [Recovered/Resolved]
  - Wheezing [Unknown]
  - Vomiting [Unknown]
  - Bronchitis [Unknown]
  - Insomnia [Unknown]
  - Pruritus [Unknown]
  - Influenza [Unknown]

NARRATIVE: CASE EVENT DATE: 201711
